FAERS Safety Report 15900827 (Version 1)
Quarter: 2019Q1

REPORT INFORMATION
  Report Type: Spontaneous
  Country: HU (occurrence: HU)
  Receive Date: 20190201
  Receipt Date: 20190201
  Transmission Date: 20190417
  Serious: Yes (Other)
  Sender: FDA-Public Use
  Company Number: HU-ACCORD-104914

PATIENT
  Age: 59 Year
  Sex: Male

DRUGS (10)
  1. FLUOROURACIL ACCORD [Suspect]
     Active Substance: FLUOROURACIL
     Indication: RECTOSIGMOID CANCER
     Dosage: 1100MG ON DAYS 1 AND 2 OF EACH CYCLE
     Route: 041
     Dates: start: 20180131
  2. METHYLPREDNISOLONE. [Concomitant]
     Active Substance: METHYLPREDNISOLONE
     Indication: PREMEDICATION
     Dates: start: 20180412, end: 20180412
  3. MEFORAL [Concomitant]
     Active Substance: METFORMIN HYDROCHLORIDE
     Indication: DIABETES MELLITUS
     Dosage: DF UNKNOWN
     Route: 048
  4. THIOGAMMA [Concomitant]
     Active Substance: THIOCTIC ACID
     Route: 048
  5. CALCIUM FOLINATE KABI [Suspect]
     Active Substance: LEUCOVORIN CALCIUM
     Indication: RECTOSIGMOID CANCER
     Dosage: 360MG ON DAYS 1 AND 2 OF EACH CYCLE
     Route: 042
     Dates: start: 20180131
  6. ERBITUX [Concomitant]
     Active Substance: CETUXIMAB
     Indication: RECTOSIGMOID CANCER
     Route: 042
     Dates: start: 20180112
  7. OXALIPLATIN KABI [Suspect]
     Active Substance: OXALIPLATIN
     Indication: RECTOSIGMOID CANCER
     Route: 042
     Dates: start: 20180131
  8. NEO-FERRO FOLGAMMA [Concomitant]
     Indication: MINERAL SUPPLEMENTATION
     Route: 048
  9. DOXAZOSIN [Concomitant]
     Active Substance: DOXAZOSIN\DOXAZOSIN MESYLATE
     Indication: HYPERTENSION
     Dosage: DF UNKNOWN
     Route: 048
  10. SUPRASTIN [Concomitant]
     Active Substance: CHLOROPYRAMINE HYDROCHLORIDE
     Indication: PREMEDICATION
     Dates: start: 20180412, end: 20180412

REACTIONS (2)
  - Back pain [Recovered/Resolved]
  - Body temperature increased [Recovered/Resolved]

NARRATIVE: CASE EVENT DATE: 20180412
